FAERS Safety Report 5145797-0 (Version None)
Quarter: 2006Q4

REPORT INFORMATION
  Report Type: 
  Country: None (occurrence: None)
  Receive Date: 20061108
  Receipt Date: 20061030
  Transmission Date: 20070319
  Serious: Yes (Hospitalization, Other)
  Sender: FDA-Public Use
  Company Number: GB-JNJFOC-20061006730

PATIENT
  Sex: Female
  Weight: 75 kg

DRUGS (7)
  1. REMICADE [Suspect]
     Indication: RHEUMATOID ARTHRITIS
     Route: 042
  2. METHOTREXATE [Concomitant]
     Route: 065
  3. FOLIC ACID [Concomitant]
     Route: 065
  4. ALENDRONATE SODIUM [Concomitant]
     Route: 065
  5. CALCICHEW [Concomitant]
     Route: 065
  6. ACETAMINOPHEN W/ CODEINE [Concomitant]
     Route: 065
  7. FLUCLOXACILLIN [Concomitant]
     Route: 065

REACTIONS (1)
  - JOINT EFFUSION [None]
